FAERS Safety Report 7575623-1 (Version None)
Quarter: 2011Q2

REPORT INFORMATION
  Report Type: 
  Country: None (occurrence: None)
  Receive Date: 20110628
  Receipt Date: 20110614
  Transmission Date: 20111010
  Serious: Yes (Hospitalization)
  Sender: FDA-Public Use
  Company Number: IT-MYLANLABS-2011S1012614

PATIENT
  Age: 68 Year
  Sex: Female

DRUGS (9)
  1. METFORMIN HCL [Concomitant]
     Route: 065
  2. HEPARIN [Concomitant]
     Route: 065
  3. VALSARTAN [Concomitant]
     Route: 065
  4. NEBIVOLOL HCL [Concomitant]
     Route: 065
  5. DULOXETIME HYDROCHLORIDE [Interacting]
     Indication: STRESS URINARY INCONTINENCE
     Route: 048
  6. DOXAZOSIN MESYLATE [Concomitant]
     Route: 065
  7. OMEPRAZOLE [Suspect]
     Route: 065
  8. RISEDRONIC ACID [Concomitant]
     Route: 065
  9. ASPIRIN [Concomitant]
     Route: 065

REACTIONS (2)
  - DRUG INTERACTION [None]
  - STRESS CARDIOMYOPATHY [None]
